FAERS Safety Report 9004858 (Version 1)
Quarter: 2013Q1

REPORT INFORMATION
  Report Type: Spontaneous
  Country: US (occurrence: None)
  Receive Date: 20130107
  Receipt Date: 20130107
  Transmission Date: 20140127
  Serious: Yes (Death)
  Sender: FDA-Public Use
  Company Number: None

PATIENT
  Age: 76 Year
  Sex: Female
  Weight: 90.4 kg

DRUGS (2)
  1. SOTALOL [Suspect]
     Route: 048
     Dates: start: 20120308, end: 20121124
  2. AZITHROMYCIN [Suspect]
     Dosage: 500MG DAY 1, 250 MG DAYS 2-3 ONCE DAILY PO
     Dates: start: 20121121, end: 20121124

REACTIONS (2)
  - Ventricular fibrillation [None]
  - Torsade de pointes [None]
